FAERS Safety Report 9745688 (Version 1)
Quarter: 2013Q4

REPORT INFORMATION
  Report Type: Spontaneous
  Country: US (occurrence: None)
  Receive Date: 20131206
  Receipt Date: 20131206
  Transmission Date: 20140711
  Serious: Yes (Other)
  Sender: FDA-Public Use
  Company Number: None

PATIENT
  Age: 42 Year
  Sex: Female
  Weight: 65.77 kg

DRUGS (2)
  1. LEVOXYL [Suspect]
  2. SYNTHROID [Suspect]
     Indication: HYPERTHYROIDISM

REACTIONS (2)
  - Drug ineffective [None]
  - Blood thyroid stimulating hormone abnormal [None]
